FAERS Safety Report 15795127 (Version 4)
Quarter: 2019Q1

REPORT INFORMATION
  Report Type: Report from Study
  Country: US (occurrence: US)
  Receive Date: 20190107
  Receipt Date: 20190220
  Transmission Date: 20190417
  Serious: Yes (Hospitalization)
  Sender: FDA-Public Use
  Company Number: US-ACTELION-A-US2018-180096

PATIENT
  Age: 65 Year
  Sex: Female

DRUGS (16)
  1. COMBIVENT [Concomitant]
     Active Substance: ALBUTEROL SULFATE\IPRATROPIUM BROMIDE
     Dosage: 2 - 3 X QD
  2. LASIX [Concomitant]
     Active Substance: FUROSEMIDE
     Dosage: 20 MG, UNK
  3. MYCOPHENOLATE [Concomitant]
     Active Substance: MYCOPHENOLIC ACID
     Dosage: 1000MG IN AM, 500MG IN PM
  4. ALBUTEROL HFA [Concomitant]
     Active Substance: ALBUTEROL SULFATE
     Dosage: 2-3 X QD
  5. CALCIUM [Concomitant]
     Active Substance: CALCIUM
     Dosage: UNK
  6. OPSUMIT [Suspect]
     Active Substance: MACITENTAN
     Indication: PULMONARY ARTERIAL HYPERTENSION
     Dosage: 10 MG, QD
     Route: 048
     Dates: start: 201809
  7. CELEBREX [Concomitant]
     Active Substance: CELECOXIB
     Dosage: 100 MG, 3 TIMES A WEEK
  8. OMEPRAZOLE. [Concomitant]
     Active Substance: OMEPRAZOLE
     Dosage: 20 MG, UNK
  9. UPTRAVI [Suspect]
     Active Substance: SELEXIPAG
     Indication: PULMONARY ARTERIAL HYPERTENSION
     Dosage: 1400 MCG, BID
     Route: 048
     Dates: start: 20170314
  10. PREDNISONE. [Concomitant]
     Active Substance: PREDNISONE
     Dosage: 2 MG, UNK
  11. HYDROXYCHLOROQUINE [Concomitant]
     Active Substance: HYDROXYCHLOROQUINE
     Dosage: 200 MG, UNK
  12. METOPROLOL. [Concomitant]
     Active Substance: METOPROLOL
     Dosage: 50 MG, QD
  13. GLUCOSAMIN CHONDROITIN [Concomitant]
     Dosage: UNK
  14. VITAMIN C [Concomitant]
     Active Substance: ASCORBIC ACID
     Dosage: UNK
  15. ADCIRCA [Concomitant]
     Active Substance: TADALAFIL
     Dosage: 40 MG, QD
     Dates: start: 201802
  16. FOSAMAX [Concomitant]
     Active Substance: ALENDRONATE SODIUM
     Dosage: 70 MG, Q1WEEK

REACTIONS (9)
  - Condition aggravated [Recovered/Resolved]
  - Interstitial lung disease [Recovered/Resolved]
  - Respiratory disorder [Unknown]
  - Cough [Not Recovered/Not Resolved]
  - Dyspnoea [Unknown]
  - Bacterial infection [Unknown]
  - Bronchitis [Not Recovered/Not Resolved]
  - Ill-defined disorder [Unknown]
  - Viral infection [Unknown]

NARRATIVE: CASE EVENT DATE: 2018
